FAERS Safety Report 8057426-7 (Version None)
Quarter: 2012Q1

REPORT INFORMATION
  Report Type: 
  Country: None (occurrence: None)
  Receive Date: 20120119
  Receipt Date: 20120110
  Transmission Date: 20120608
  Serious: Yes (Hospitalization, Other)
  Sender: FDA-Public Use
  Company Number: US-ASTRAZENECA-2011SE38476

PATIENT
  Age: 43 Year
  Sex: Female

DRUGS (21)
  1. FISH OIL [Concomitant]
  2. TOPAMAX [Concomitant]
  3. PROMETHAZINE [Concomitant]
  4. BELLADONA PHENOBARBITAL [Concomitant]
  5. ONDANSETRON HCL [Concomitant]
  6. NEXIUM [Suspect]
     Route: 048
  7. BUSPAR [Concomitant]
  8. GLYCOPYRROLATE [Concomitant]
  9. LORTAB [Concomitant]
     Dosage: 75-500 3 TABLETS AS NEEDED
  10. REGLAN [Concomitant]
  11. IRON [Concomitant]
  12. STOOL SOFTNER [Concomitant]
  13. CALCIUM CARBONATE [Concomitant]
     Dosage: 600 D 2 TAB ONCE
  14. CARAFATE [Concomitant]
  15. FISH OIL [Concomitant]
  16. BENEFIBER [Concomitant]
  17. POLYETHYLENE GLYCOL [Concomitant]
     Dosage: 3350 POWDER 17GM 1 TIME
  18. DRISDOL [Concomitant]
     Dosage: 1.25MG (50000) WEEKLY
  19. LORTAB [Concomitant]
     Dosage: 75-500 AS NEEDED
  20. XIFAXAN [Concomitant]
  21. SUCRALFATE [Concomitant]

REACTIONS (27)
  - GASTRIC POLYPS [None]
  - BACK PAIN [None]
  - GASTRIC DISORDER [None]
  - HEPATIC STEATOSIS [None]
  - HAEMORRHOIDS [None]
  - CONSTIPATION [None]
  - ERUCTATION [None]
  - ABDOMINAL PAIN UPPER [None]
  - VOMITING [None]
  - HEPATIC ENZYME INCREASED [None]
  - IMPAIRED GASTRIC EMPTYING [None]
  - DIABETIC NEUROPATHY [None]
  - WEIGHT ABNORMAL [None]
  - DYSPEPSIA [None]
  - COLONIC POLYP [None]
  - PANCREATITIS CHRONIC [None]
  - BLOOD TRIGLYCERIDES INCREASED [None]
  - BOWEL MOVEMENT IRREGULARITY [None]
  - DECREASED APPETITE [None]
  - NAUSEA [None]
  - GASTRITIS [None]
  - DYSPNOEA [None]
  - ULCER [None]
  - ABDOMINAL DISTENSION [None]
  - GASTROOESOPHAGEAL REFLUX DISEASE [None]
  - FATIGUE [None]
  - JOINT SWELLING [None]
